FAERS Safety Report 10898885 (Version 2)
Quarter: 2015Q2

REPORT INFORMATION
  Report Type: Report from Study
  Country: AU (occurrence: AU)
  Receive Date: 20150309
  Receipt Date: 20150415
  Transmission Date: 20150821
  Serious: Yes (Hospitalization)
  Sender: FDA-Public Use
  Company Number: PHHY2015AU024295

PATIENT
  Age: 53 Year
  Sex: Male

DRUGS (1)
  1. CLOZARIL [Suspect]
     Active Substance: CLOZAPINE
     Indication: SCHIZOPHRENIA
     Dosage: 600 OT, UNK
     Route: 048
     Dates: start: 19931106

REACTIONS (3)
  - Schizophrenia [Unknown]
  - Malaise [Unknown]
  - Aggression [Unknown]

NARRATIVE: CASE EVENT DATE: 20150226
